FAERS Safety Report 20104945 (Version 1)
Quarter: 2021Q4

REPORT INFORMATION
  Report Type: Spontaneous
  Country: ES (occurrence: ES)
  Receive Date: 20211124
  Receipt Date: 20211124
  Transmission Date: 20220303
  Serious: Yes (Life-Threatening, Hospitalization)
  Sender: FDA-Public Use
  Company Number: ES-AEMPS-1044230

PATIENT
  Age: 58 Year
  Sex: Male

DRUGS (4)
  1. CIPROFLOXACIN [Suspect]
     Active Substance: CIPROFLOXACIN
     Indication: Urinary tract infection
     Dosage: 500 MILLIGRAM, BID
     Route: 048
     Dates: start: 20210917, end: 20210926
  2. SEPTRIN FORTE 160 mg / 800 mg TABLETS, 20 tablets [Concomitant]
     Indication: Prostatitis
     Dosage: ()
     Route: 048
     Dates: start: 202110, end: 202110
  3. CAPENON HCT 20 mg / 5 mg / 12.5 mg FILM-COATED TABLETS [Concomitant]
     Indication: Product used for unknown indication
     Dosage: 1 DOSAGE FORM, DAILY
     Route: 048
     Dates: start: 20210705, end: 20211012
  4. TRIALMIN 900 mg FILM-COATED TABLETS, 30 tablets [Concomitant]
     Indication: Hyperlipidaemia
     Dosage: 900 MILLIGRAM, DAILY
     Route: 048
     Dates: start: 201507, end: 20211012

REACTIONS (1)
  - Subarachnoid haemorrhage [Recovered/Resolved]

NARRATIVE: CASE EVENT DATE: 20211012
